FAERS Safety Report 22905476 (Version 2)
Quarter: 2023Q4

REPORT INFORMATION
  Report Type: Spontaneous
  Country: AU (occurrence: AU)
  Receive Date: 20230905
  Receipt Date: 20231027
  Transmission Date: 20240110
  Serious: Yes (Hospitalization, Other)
  Sender: FDA-Public Use
  Company Number: AU-SA-SAC20230901000508

PATIENT
  Sex: Female

DRUGS (1)
  1. INSULIN GLARGINE [Suspect]
     Active Substance: INSULIN GLARGINE
     Dosage: UNK
     Route: 065
     Dates: start: 2013

REACTIONS (4)
  - Fall [Unknown]
  - Peroneal nerve palsy [Unknown]
  - Myocardial infarction [Unknown]
  - Illness [Unknown]

NARRATIVE: CASE EVENT DATE: 20230101
